FAERS Safety Report 17087158 (Version 3)
Quarter: 2020Q1

REPORT INFORMATION
  Report Type: Spontaneous
  Country: JP (occurrence: JP)
  Receive Date: 20191128
  Receipt Date: 20200107
  Transmission Date: 20200409
  Serious: Yes (Death, Hospitalization, Disabling, Other)
  Sender: FDA-Public Use
  Company Number: JP-BRISTOL-MYERS SQUIBB COMPANY-BMS-2019-058369

PATIENT
  Age: 72 Year
  Sex: Male
  Weight: 48.3 kg

DRUGS (2)
  1. OPDIVO [Suspect]
     Active Substance: NIVOLUMAB
     Indication: GASTRIC CANCER
     Dosage: 150 MILLIGRAM
     Route: 041
     Dates: start: 20190327
  2. OPDIVO [Suspect]
     Active Substance: NIVOLUMAB
     Indication: PRODUCT USED FOR UNKNOWN INDICATION
     Dosage: 240 MILLIGRAM
     Route: 041
     Dates: start: 20190424, end: 20190904

REACTIONS (7)
  - Herpes zoster [Recovered/Resolved with Sequelae]
  - Eye inflammation [Unknown]
  - Encephalitis [Recovered/Resolved with Sequelae]
  - Meningitis viral [Recovered/Resolved with Sequelae]
  - Drowning [Fatal]
  - Pneumonia aspiration [Recovered/Resolved]
  - Intentional product use issue [Unknown]

NARRATIVE: CASE EVENT DATE: 2019
